FAERS Safety Report 16534871 (Version 1)
Quarter: 2019Q3

REPORT INFORMATION
  Report Type: Spontaneous
  Country: NO (occurrence: NO)
  Receive Date: 20190705
  Receipt Date: 20190705
  Transmission Date: 20191004
  Serious: Yes (Hospitalization, Disabling)
  Sender: FDA-Public Use
  Company Number: NO-OCTA-NGAM10419NO

PATIENT
  Age: 34 Year
  Sex: Male

DRUGS (20)
  1. AMLODIPINE VITABALANS [Concomitant]
     Indication: HYPERTENSION
     Dosage: ADMINISTRERED THROUGH ENTERAL FEEDING TUBE
     Route: 050
  2. ZOPICLONE ACTAVIS [Concomitant]
     Active Substance: ZOPICLONE
     Indication: INSOMNIA
     Dosage: 7,5 MG IN THE EVENING
  3. LAXOBERAL [Concomitant]
     Active Substance: SODIUM PICOSULFATE
     Indication: CONSTIPATION
     Dosage: 15 DROPS ONCE DAILY
     Route: 048
  4. GABAPENTIN. [Concomitant]
     Active Substance: GABAPENTIN
     Indication: PAIN
     Dosage: 900 MG MORNING, 600 MG AFTERNOON, 900 MG EVENING
     Route: 048
  5. ESOMEPRAZOL SANDOZ [Concomitant]
     Indication: EPIGASTRIC DISCOMFORT
     Route: 048
  6. PARACET [Concomitant]
     Active Substance: ACETAMINOPHEN
     Indication: PAIN
     Dosage: 1 G X 4 PS
  7. AMITRIPTYLIN ABCUR [Concomitant]
     Active Substance: AMITRIPTYLINE HYDROCHLORIDE
     Indication: PAIN
     Dosage: 50 MG IN THE EVENING
  8. NORMOSANG [Suspect]
     Active Substance: HEME
     Indication: PRODUCT USED FOR UNKNOWN INDICATION
     Dosage: ONLY 2 DOSES ADMINISTERED, DILUTED IN ALBUMINE
     Route: 042
  9. MOVICOL [Concomitant]
     Active Substance: POLYETHYLENE GLYCOL 3350\POTASSIUM CHLORIDE\SODIUM BICARBONATE\SODIUM CHLORIDE
     Indication: CONSTIPATION
     Route: 048
  10. PIPERACILLIN/TAZOBACTAM FRESENIUS KABI [Concomitant]
     Indication: INFECTION
  11. OXAZEPAM. [Concomitant]
     Active Substance: OXAZEPAM
     Indication: SEDATIVE THERAPY
     Dosage: 15 MG X 2 PS
  12. CLONIDINE. [Concomitant]
     Active Substance: CLONIDINE
     Indication: PAIN
     Dosage: 75 MIKROGRAM X 3 IV
     Route: 042
  13. KLEXANE [Concomitant]
     Active Substance: ENOXAPARIN
     Indication: THROMBOSIS PROPHYLAXIS
     Route: 058
  14. PIPERACILLIN AND TAZOBACTAM [Concomitant]
     Active Substance: PIPERACILLIN SODIUM\TAZOBACTAM SODIUM
     Indication: INFECTION
     Dosage: 4G/0,5G X 3 IV
     Route: 041
  15. PANZYGA [Suspect]
     Active Substance: HUMAN IMMUNOGLOBULIN G
     Indication: GUILLAIN-BARRE SYNDROME
     Dosage: 30 G DAGLIG I 5 DAGER
     Route: 041
     Dates: start: 20190418, end: 20190507
  16. DYNASTAT [Concomitant]
     Active Substance: PARECOXIB SODIUM
     Indication: PAIN
     Route: 042
  17. NATRIUMKLORID SA [Concomitant]
     Indication: DYSPNOEA
     Dosage: 2 ML X 6
  18. MUCOMYST [Concomitant]
     Active Substance: ACETYLCYSTEINE
     Indication: PRODUCTIVE COUGH
     Route: 055
  19. FENTANYL SANDOZ [Concomitant]
     Active Substance: FENTANYL
     Indication: PAIN
     Dosage: 50 MIKROG/TIME
     Route: 051
  20. NYCOPLUS MAGNESIUM 120 MG [Concomitant]
     Indication: HYPOMAGNESAEMIA
     Route: 048

REACTIONS (1)
  - Cerebrovascular accident [Recovering/Resolving]

NARRATIVE: CASE EVENT DATE: 20190517
